FAERS Safety Report 18594046 (Version 1)
Quarter: 2020Q4

REPORT INFORMATION
  Report Type: Spontaneous
  Country: IN (occurrence: IN)
  Receive Date: 20201209
  Receipt Date: 20201209
  Transmission Date: 20210114
  Serious: Yes (Hospitalization)
  Sender: FDA-Public Use
  Company Number: NVSC2020IN322119

PATIENT
  Age: 51 Year
  Sex: Female

DRUGS (2)
  1. REVOLADE [Suspect]
     Active Substance: ELTROMBOPAG
     Indication: APLASTIC ANAEMIA
     Dosage: 150 MG, QD
     Route: 048
     Dates: start: 20201102, end: 20201110
  2. REVOLADE [Suspect]
     Active Substance: ELTROMBOPAG
     Dosage: 100 MG, QD
     Route: 048
     Dates: start: 20201126

REACTIONS (2)
  - Hepatic function abnormal [Recovered/Resolved]
  - Product use issue [Not Recovered/Not Resolved]
